FAERS Safety Report 7660562-8 (Version None)
Quarter: 2011Q3

REPORT INFORMATION
  Report Type: 
  Country: None (occurrence: None)
  Receive Date: 20110805
  Receipt Date: 20101028
  Transmission Date: 20111222
  Serious: No
  Sender: FDA-Public Use
  Company Number: US-ABBOTT-10P-163-0682197-00

PATIENT
  Sex: Female
  Weight: 73.094 kg

DRUGS (16)
  1. PLAVIX [Concomitant]
     Indication: STENT PLACEMENT
  2. ZANTAC [Concomitant]
     Indication: NERVOUSNESS
  3. PROGESTERONE OINTMENT [Concomitant]
     Indication: PRODUCT USED FOR UNKNOWN INDICATION
     Dosage: TWICE DAILY ON CHEST
     Route: 061
  4. ALTACE [Concomitant]
     Indication: BLOOD PRESSURE
     Dosage: 10 MG PM  2.5 IN AM
  5. VESICARE [Concomitant]
     Indication: URINARY INCONTINENCE
  6. CEREFOLINNAC [Concomitant]
     Indication: VITAMIN B COMPLEX DEFICIENCY
  7. NIASPAN [Suspect]
     Dates: start: 20100606, end: 20100706
  8. NIASPAN [Suspect]
     Route: 048
     Dates: start: 20100806, end: 20100906
  9. ALTACE [Concomitant]
     Indication: PROPHYLAXIS
  10. LOVASA [Concomitant]
     Indication: BLOOD CHOLESTEROL
  11. THYROID TAB [Concomitant]
     Indication: HYPOTHYROIDISM
  12. NIASPAN [Suspect]
     Indication: BLOOD CHOLESTEROL INCREASED
     Dates: start: 20100506, end: 20100606
  13. NITROGLYCERIN [Concomitant]
     Indication: PRODUCT USED FOR UNKNOWN INDICATION
  14. NIASPAN [Suspect]
     Dates: start: 20100706, end: 20100806
  15. CRESTOR [Concomitant]
     Indication: PRODUCT USED FOR UNKNOWN INDICATION
  16. ESTROGENT GEL [Concomitant]
     Indication: PRODUCT USED FOR UNKNOWN INDICATION
     Route: 061

REACTIONS (1)
  - PRURITUS [None]
